FAERS Safety Report 9230505 (Version 1)
Quarter: 2013Q1

REPORT INFORMATION
  Report Type: Spontaneous
  Country: US (occurrence: None)
  Receive Date: 20121031
  Receipt Date: 20121031
  Transmission Date: 20140127
  Serious: No
  Sender: FDA-Public Use
  Company Number: PHEH2012US016299

PATIENT
  Age: 54 Year
  Sex: Female

DRUGS (1)
  1. GILENYA (FTY)CAPSULE, 0.5MG [Suspect]
     Indication: MULTIPLE SCLEROSIS
     Route: 048
     Dates: start: 20120312, end: 20120817

REACTIONS (7)
  - Neuropathy peripheral [None]
  - Balance disorder [None]
  - Gait disturbance [None]
  - Muscle spasms [None]
  - Oedema peripheral [None]
  - Oedema [None]
  - Hypertension [None]
